FAERS Safety Report 13475195 (Version 1)
Quarter: 2017Q2

REPORT INFORMATION
  Report Type: Report from Study
  Country: None (occurrence: US)
  Receive Date: 20170424
  Receipt Date: 20170424
  Transmission Date: 20170830
  Serious: Yes (Hospitalization)
  Sender: FDA-Public Use
  Company Number: US-ABBVIE-17P-163-1948418-00

PATIENT
  Sex: Male

DRUGS (1)
  1. CREON [Suspect]
     Active Substance: PANCRELIPASE AMYLASE\PANCRELIPASE LIPASE\PANCRELIPASE PROTEASE
     Indication: PRODUCT USED FOR UNKNOWN INDICATION
     Dosage: 3 WITH EACH MEAL AND  2 WITH SNACKS.
     Route: 048

REACTIONS (4)
  - Skin reaction [Unknown]
  - Erythema [Unknown]
  - Oedema peripheral [Unknown]
  - Liver function test abnormal [Unknown]
